FAERS Safety Report 14877496 (Version 11)
Quarter: 2019Q1

REPORT INFORMATION
  Report Type: Report from Study
  Country: US (occurrence: US)
  Receive Date: 20180510
  Receipt Date: 20190327
  Transmission Date: 20190417
  Serious: Yes (Hospitalization)
  Sender: FDA-Public Use
  Company Number: US-ACTELION-A-NJ2017-149358

PATIENT
  Age: 33 Year
  Sex: Female
  Weight: 59.86 kg

DRUGS (21)
  1. VELETRI [Suspect]
     Active Substance: EPOPROSTENOL
     Dosage: 2 NG/KG, PER MIN
     Route: 042
     Dates: start: 20170120
  2. REVATIO [Suspect]
     Active Substance: SILDENAFIL CITRATE
     Dosage: UNK MG, UNK
     Route: 048
     Dates: start: 201706
  3. ALDACTONE [Concomitant]
     Active Substance: SPIRONOLACTONE
     Dosage: 25 MG, QD
     Route: 048
     Dates: start: 20160806
  4. LASIX [Concomitant]
     Active Substance: FUROSEMIDE
     Dosage: 40 MG, QD
     Route: 048
     Dates: start: 20160815
  5. CLARITIN [Concomitant]
     Active Substance: LORATADINE
     Dosage: 10 MG, QD
  6. VELETRI [Suspect]
     Active Substance: EPOPROSTENOL
     Dosage: 40 NG/KG, PER MIN
     Route: 042
  7. FLOLAN [Suspect]
     Active Substance: EPOPROSTENOL SODIUM
     Indication: PRODUCT USED FOR UNKNOWN INDICATION
     Dosage: 40 NG/KG, PER MIN
     Route: 042
     Dates: start: 20171205, end: 20171215
  8. ADCIRCA [Concomitant]
     Active Substance: TADALAFIL
  9. DIGOXIN. [Concomitant]
     Active Substance: DIGOXIN
     Dosage: 0.125 MG, QD
     Dates: start: 20160806
  10. VELETRI [Suspect]
     Active Substance: EPOPROSTENOL
     Dosage: 12 NG/KG, PER MIN
     Route: 042
     Dates: start: 20170306
  11. COUMADIN [Concomitant]
     Active Substance: WARFARIN SODIUM
     Dosage: 2.5 MG, QD
     Route: 048
     Dates: start: 20171219
  12. NEURONTIN [Concomitant]
     Active Substance: GABAPENTIN
     Dosage: 100 MG, TID
     Route: 048
     Dates: start: 20161014
  13. VELETRI [Suspect]
     Active Substance: EPOPROSTENOL
     Dosage: 11.8 NG/KG, PER MIN
     Route: 042
     Dates: start: 20170218, end: 20171205
  14. VELETRI [Suspect]
     Active Substance: EPOPROSTENOL
     Dosage: UNK
     Route: 042
     Dates: start: 20171215
  15. REVATIO [Suspect]
     Active Substance: SILDENAFIL CITRATE
     Indication: PRODUCT USED FOR UNKNOWN INDICATION
     Dosage: 20 MG, TID
     Route: 048
     Dates: start: 20160806
  16. REVATIO [Suspect]
     Active Substance: SILDENAFIL CITRATE
     Dosage: 40 MG, Q8HRS
     Route: 048
  17. ASPIRIN. [Concomitant]
     Active Substance: ASPIRIN
     Dosage: 81 MG, QD
     Route: 048
     Dates: start: 20160812
  18. HEPARIN [Concomitant]
     Active Substance: HEPARIN SODIUM
     Dosage: 5000 U, Q6HRS, PRN
  19. HEPARIN [Concomitant]
     Active Substance: HEPARIN SODIUM
     Dosage: 18 U/KG, CONT INFUS
     Route: 042
  20. VELETRI [Suspect]
     Active Substance: EPOPROSTENOL
     Indication: PULMONARY HYPERTENSION
     Dosage: 36 NG/KG, PER MIN
     Route: 042
  21. TRAZODONE [Concomitant]
     Active Substance: TRAZODONE HYDROCHLORIDE
     Dosage: 50 MG, QPM
     Route: 048
     Dates: start: 20170118

REACTIONS (36)
  - Pulmonary arterial hypertension [Recovering/Resolving]
  - White blood cell count increased [Recovering/Resolving]
  - Catheter placement [Recovering/Resolving]
  - Catheter site pruritus [Unknown]
  - Application site burn [Unknown]
  - Pain in extremity [Unknown]
  - Lip swelling [Unknown]
  - Device occlusion [Unknown]
  - Condition aggravated [Recovering/Resolving]
  - Flushing [Recovered/Resolved]
  - Nasopharyngitis [Unknown]
  - Cough [Not Recovered/Not Resolved]
  - Abdominal pain upper [Unknown]
  - Pruritus [Unknown]
  - Right ventricular systolic pressure increased [Recovering/Resolving]
  - Headache [Unknown]
  - Swelling [Unknown]
  - Electrocardiogram abnormal [Recovering/Resolving]
  - Post-traumatic stress disorder [Unknown]
  - Catheter site urticaria [Unknown]
  - Hypoaesthesia [Unknown]
  - Catheter site scab [Unknown]
  - Catheter site erythema [Unknown]
  - Application site pruritus [Unknown]
  - Device alarm issue [Not Recovered/Not Resolved]
  - Tearfulness [Unknown]
  - Diarrhoea [Unknown]
  - Ischaemia [Unknown]
  - Abdominal discomfort [Unknown]
  - Device issue [Unknown]
  - Thrombosis in device [Unknown]
  - International normalised ratio abnormal [Unknown]
  - Influenza [Unknown]
  - Catheter site discolouration [Unknown]
  - Catheter site inflammation [Unknown]
  - Eye swelling [Unknown]

NARRATIVE: CASE EVENT DATE: 20170120
